FAERS Safety Report 18636913 (Version 2)
Quarter: 2023Q2

REPORT INFORMATION
  Report Type: Spontaneous
  Country: FR (occurrence: FR)
  Receive Date: 20201219
  Receipt Date: 20230511
  Transmission Date: 20230722
  Serious: Yes (Hospitalization, Other)
  Sender: FDA-Public Use
  Company Number: FR-AFSSAPS-ST20201666

PATIENT
  Age: 59 Year
  Sex: Female
  Weight: 62 kg

DRUGS (48)
  1. CARBOPLATIN [Suspect]
     Active Substance: CARBOPLATIN
     Indication: Ovarian cancer metastatic
     Dosage: UNK
     Route: 041
     Dates: start: 20161021, end: 2017
  2. CARBOPLATIN [Suspect]
     Active Substance: CARBOPLATIN
     Indication: Triple negative breast cancer
     Dosage: UNK
     Route: 041
     Dates: start: 20180326, end: 20180704
  3. CARBOPLATIN [Suspect]
     Active Substance: CARBOPLATIN
     Dosage: UNK
     Route: 041
     Dates: start: 20190103, end: 20190529
  4. CARBOPLATIN [Suspect]
     Active Substance: CARBOPLATIN
     Dosage: 168 MILLIGRAM, 1 TOTAL
     Route: 065
     Dates: start: 20221006, end: 20221006
  5. CARBOPLATIN [Suspect]
     Active Substance: CARBOPLATIN
     Dosage: 170 MILLIGRAM, 1 TOTAL
     Route: 065
     Dates: start: 20220825, end: 20220825
  6. CARBOPLATIN [Suspect]
     Active Substance: CARBOPLATIN
     Dosage: 165 MILLIGRAM, 1 TOTAL
     Route: 065
     Dates: start: 20220804, end: 20220804
  7. CARBOPLATIN [Suspect]
     Active Substance: CARBOPLATIN
     Dosage: 172 MILLIGRAM, 1 TOTAL
     Route: 065
     Dates: start: 20220929, end: 20220929
  8. CARBOPLATIN [Suspect]
     Active Substance: CARBOPLATIN
     Dosage: 173.5 MILLIGRAM, 1 TOTAL
     Route: 065
     Dates: start: 20220818, end: 20220818
  9. CARBOPLATIN [Suspect]
     Active Substance: CARBOPLATIN
     Dosage: 181 MILLIGRAM, 1 TOTAL
     Route: 065
     Dates: start: 20220901, end: 20220901
  10. CARBOPLATIN [Suspect]
     Active Substance: CARBOPLATIN
     Dosage: 180 MILLIGRAM, 1 TOTAL
     Route: 065
     Dates: start: 20221027, end: 20221027
  11. CARBOPLATIN [Suspect]
     Active Substance: CARBOPLATIN
     Dosage: 166 MILLIGRAM, 1 TOTAL
     Route: 065
     Dates: start: 20220728, end: 20220728
  12. CARBOPLATIN [Suspect]
     Active Substance: CARBOPLATIN
     Dosage: 168 MILLIGRAM, 1 TOTAL
     Route: 065
     Dates: start: 20221014, end: 20221014
  13. CARBOPLATIN [Suspect]
     Active Substance: CARBOPLATIN
     Dosage: 170.5 MILLIGRAM, 1 TOTAL
     Route: 065
     Dates: start: 20221020, end: 20221020
  14. CARBOPLATIN [Suspect]
     Active Substance: CARBOPLATIN
     Dosage: 183.5 MILLIGRAM, 1 TOTAL
     Route: 065
     Dates: start: 20220908, end: 20220908
  15. CARBOPLATIN [Suspect]
     Active Substance: CARBOPLATIN
     Dosage: 165 MILLIGRAM, 1 TOTAL
     Route: 065
     Dates: start: 20220811, end: 20220811
  16. EPIRUBICIN [Suspect]
     Active Substance: EPIRUBICIN
     Indication: Invasive ductal breast carcinoma
     Dosage: 140 MILLIGRAM, CYCLICAL
     Route: 041
     Dates: start: 2002, end: 20030130
  17. EPIRUBICIN [Suspect]
     Active Substance: EPIRUBICIN
     Indication: Triple negative breast cancer
     Dosage: 152 MILLIGRAM, 1 TOTAL
     Route: 065
     Dates: start: 20221128, end: 20221128
  18. EPIRUBICIN [Suspect]
     Active Substance: EPIRUBICIN
     Dosage: 150.5 MILLIGRAM, 1 TOTAL
     Route: 065
     Dates: start: 20221222, end: 20221222
  19. EPIRUBICIN [Suspect]
     Active Substance: EPIRUBICIN
     Dosage: 150.5 MILLIGRAM, 1 TOTAL
     Route: 065
     Dates: start: 20230112, end: 20230112
  20. PACLITAXEL [Suspect]
     Active Substance: PACLITAXEL
     Indication: Ovarian cancer metastatic
     Dosage: UNK
     Route: 041
     Dates: start: 20161021, end: 2017
  21. PACLITAXEL [Suspect]
     Active Substance: PACLITAXEL
     Indication: Triple negative breast cancer
     Dosage: 133 MILLIGRAM, 1 TOTAL
     Route: 065
     Dates: start: 20220728, end: 20220728
  22. PACLITAXEL [Suspect]
     Active Substance: PACLITAXEL
     Dosage: 131 MILLIGRAM, 1 TOTAL
     Route: 065
     Dates: start: 20220818, end: 20220818
  23. PACLITAXEL [Suspect]
     Active Substance: PACLITAXEL
     Dosage: 131 MILLIGRAM, 1 TOTAL
     Route: 065
     Dates: start: 20220901, end: 20220901
  24. PACLITAXEL [Suspect]
     Active Substance: PACLITAXEL
     Dosage: 133 MILLIGRAM, 1 TOTAL
     Route: 065
     Dates: start: 20221006, end: 20221016
  25. PACLITAXEL [Suspect]
     Active Substance: PACLITAXEL
     Dosage: 107.5 MILLIGRAM, 1 TOTAL
     Route: 065
     Dates: start: 20221020, end: 20221020
  26. PACLITAXEL [Suspect]
     Active Substance: PACLITAXEL
     Dosage: 107.5 MILLIGRAM, 1 TOTAL
     Route: 065
     Dates: start: 20221027, end: 20221027
  27. PACLITAXEL [Suspect]
     Active Substance: PACLITAXEL
     Dosage: 131 MILLIGRAM, 1 TOTAL
     Route: 065
     Dates: start: 20220811, end: 20220811
  28. PACLITAXEL [Suspect]
     Active Substance: PACLITAXEL
     Dosage: 131 MILLIGRAM, 1 TOTAL
     Route: 065
     Dates: start: 20220908, end: 20220908
  29. PACLITAXEL [Suspect]
     Active Substance: PACLITAXEL
     Dosage: 133 MILLIGRAM, 1 TOTAL
     Route: 065
     Dates: start: 20221014, end: 20221014
  30. PACLITAXEL [Suspect]
     Active Substance: PACLITAXEL
     Dosage: 133 MILLIGRAM, 1 TOTAL
     Route: 065
     Dates: start: 20220929, end: 20220929
  31. PACLITAXEL [Suspect]
     Active Substance: PACLITAXEL
     Dosage: 130.5 MILLIGRAM, 1 TOTAL
     Route: 065
     Dates: start: 20220804, end: 20220804
  32. PACLITAXEL [Suspect]
     Active Substance: PACLITAXEL
     Dosage: 131 MILLIGRAM, 1 TOTAL
     Route: 065
     Dates: start: 20220825, end: 20220825
  33. DOXORUBICIN HYDROCHLORIDE [Suspect]
     Active Substance: DOXORUBICIN HYDROCHLORIDE
     Indication: Ovarian cancer metastatic
     Dosage: UNK
     Route: 041
     Dates: start: 20180326, end: 20180704
  34. DOXORUBICIN HYDROCHLORIDE [Suspect]
     Active Substance: DOXORUBICIN HYDROCHLORIDE
     Dosage: UNK
     Route: 041
     Dates: start: 20190103, end: 20190529
  35. CYCLOPHOSPHAMIDE [Suspect]
     Active Substance: CYCLOPHOSPHAMIDE
     Indication: Invasive ductal breast carcinoma
     Dosage: UNK UNK, CYCLICAL
     Route: 041
     Dates: start: 2002, end: 20030130
  36. CYCLOPHOSPHAMIDE [Suspect]
     Active Substance: CYCLOPHOSPHAMIDE
     Indication: Triple negative breast cancer
     Dosage: 1014 MILLIGRAM, 1 TOTAL
     Route: 065
     Dates: start: 20221128, end: 20221128
  37. CYCLOPHOSPHAMIDE [Suspect]
     Active Substance: CYCLOPHOSPHAMIDE
     Dosage: 1002 MILLIGRAM, 1 TOTAL
     Route: 065
     Dates: start: 20221222, end: 20221222
  38. CYCLOPHOSPHAMIDE [Suspect]
     Active Substance: CYCLOPHOSPHAMIDE
     Dosage: 1002 MILLIGRAM, 1 TOTAL
     Route: 065
     Dates: start: 20230112, end: 20230112
  39. FLUOROURACIL [Suspect]
     Active Substance: FLUOROURACIL
     Indication: Invasive ductal breast carcinoma
     Dosage: UNK UNK, CYCLICAL
     Route: 041
     Dates: start: 2002, end: 20030130
  40. KEYTRUDA [Suspect]
     Active Substance: PEMBROLIZUMAB
     Indication: Triple negative breast cancer
     Dosage: 200 MILLIGRAM, 1 TOTAL
     Route: 065
     Dates: start: 20220728, end: 20220728
  41. KEYTRUDA [Suspect]
     Active Substance: PEMBROLIZUMAB
     Dosage: 200 MILLIGRAM, 1 TOTAL
     Route: 065
     Dates: start: 20220818, end: 20220818
  42. KEYTRUDA [Suspect]
     Active Substance: PEMBROLIZUMAB
     Dosage: 200 MILLIGRAM, 1 TOTAL
     Route: 065
     Dates: start: 20220908, end: 20220908
  43. KEYTRUDA [Suspect]
     Active Substance: PEMBROLIZUMAB
     Dosage: 200 MILLIGRAM, 1 TOTAL
     Route: 065
     Dates: start: 20221014, end: 20221014
  44. KEYTRUDA [Suspect]
     Active Substance: PEMBROLIZUMAB
     Dosage: 200 MILLIGRAM, 1 TOTAL
     Route: 065
     Dates: start: 20221128, end: 20221128
  45. KEYTRUDA [Suspect]
     Active Substance: PEMBROLIZUMAB
     Dosage: 200 MILLIGRAM, 1 TOTAL
     Route: 065
     Dates: start: 20221222, end: 20221222
  46. KEYTRUDA [Suspect]
     Active Substance: PEMBROLIZUMAB
     Dosage: 200 MILLIGRAM, 1 TOTAL
     Route: 065
     Dates: start: 20230112, end: 20230112
  47. OLAPARIB [Suspect]
     Active Substance: OLAPARIB
     Indication: Ovarian cancer metastatic
     Dosage: 600 MILLIGRAM, ONCE A DAY
     Route: 048
     Dates: start: 20190627, end: 20201107
  48. XARELTO [Concomitant]
     Active Substance: RIVAROXABAN
     Indication: Product used for unknown indication
     Dosage: UNK
     Route: 065

REACTIONS (3)
  - Pancytopenia [Recovered/Resolved]
  - Pyrexia [Recovered/Resolved]
  - Acute myeloid leukaemia [Not Recovered/Not Resolved]

NARRATIVE: CASE EVENT DATE: 20201107
